FAERS Safety Report 10097049 (Version 1)
Quarter: 2014Q2

REPORT INFORMATION
  Report Type: Spontaneous
  Country: US (occurrence: US)
  Receive Date: 20140422
  Receipt Date: 20140422
  Transmission Date: 20141212
  Serious: Yes (Other)
  Sender: FDA-Public Use
  Company Number: US-BRISTOL-MYERS SQUIBB COMPANY-20641999

PATIENT
  Sex: Male

DRUGS (1)
  1. ELIQUIS [Suspect]

REACTIONS (3)
  - Road traffic accident [Unknown]
  - Head injury [Unknown]
  - Subdural haematoma [Recovered/Resolved]
